FAERS Safety Report 20678897 (Version 1)
Quarter: 2022Q2

REPORT INFORMATION
  Report Type: Spontaneous
  Country: FR (occurrence: None)
  Receive Date: 20220406
  Receipt Date: 20220406
  Transmission Date: 20220720
  Serious: Yes (Hospitalization)
  Sender: FDA-Public Use
  Company Number: None

PATIENT
  Age: 68 Year
  Sex: Male
  Weight: 85 kg

DRUGS (18)
  1. FOSCARNET [Suspect]
     Active Substance: FOSCARNET
     Indication: Uveitis
     Route: 031
     Dates: start: 20190305
  2. IRBESARTAN [Suspect]
     Active Substance: IRBESARTAN
     Indication: Hypertension
     Dosage: UNKNOWN
     Route: 048
     Dates: start: 20180322, end: 20190318
  3. ACYCLOVIR [Suspect]
     Active Substance: ACYCLOVIR
     Indication: Herpes simplex
     Route: 042
     Dates: start: 20190305, end: 20190326
  4. COLCHICINE [Suspect]
     Active Substance: COLCHICINE
     Indication: Arthritis
     Route: 048
     Dates: start: 20190316, end: 20190318
  5. BISOPROLOL [Concomitant]
     Active Substance: BISOPROLOL
     Route: 065
  6. INSULIN ASPART [Concomitant]
     Active Substance: INSULIN ASPART
     Route: 065
  7. LAMOTRIGINE [Concomitant]
     Active Substance: LAMOTRIGINE
     Route: 065
  8. ATROPINE [Concomitant]
     Active Substance: ATROPINE
     Route: 065
  9. METHOXY POLYETHYLENE GLYCOL-EPOETIN BETA [Concomitant]
     Active Substance: METHOXY POLYETHYLENE GLYCOL-EPOETIN BETA
     Route: 065
  10. INSULIN GLARGINE [Concomitant]
     Active Substance: INSULIN GLARGINE
     Route: 065
  11. URAPIDIL [Concomitant]
     Active Substance: URAPIDIL
     Route: 065
  12. ASPIRIN DL-LYSINE [Concomitant]
     Active Substance: ASPIRIN DL-LYSINE
     Route: 065
  13. LEVETIRACETAM [Concomitant]
     Active Substance: LEVETIRACETAM
     Route: 065
  14. ACETAMINOPHEN [Concomitant]
     Active Substance: ACETAMINOPHEN
     Route: 065
  15. FELODIPINE [Concomitant]
     Active Substance: FELODIPINE
     Route: 065
  16. SODIUM CHLORIDE [Concomitant]
     Active Substance: SODIUM CHLORIDE
     Route: 065
  17. LANSOPRAZOLE [Concomitant]
     Active Substance: LANSOPRAZOLE
     Route: 065
  18. DEXAMETHASONE\TOBRAMYCIN [Concomitant]
     Active Substance: DEXAMETHASONE\TOBRAMYCIN
     Route: 065

REACTIONS (1)
  - Chronic kidney disease [Recovered/Resolved with Sequelae]

NARRATIVE: CASE EVENT DATE: 20190318
